FAERS Safety Report 10219170 (Version 2)
Quarter: 2014Q2

REPORT INFORMATION
  Report Type: Other
  Country: CA (occurrence: CA)
  Receive Date: 20140605
  Receipt Date: 20140605
  Transmission Date: 20141212
  Serious: Yes (Hospitalization, Other)
  Sender: FDA-Public Use
  Company Number: CA-GSKPPD-2014GSK029062

PATIENT
  Sex: Male

DRUGS (1)
  1. AVANDIA [Suspect]
     Indication: DIABETES MELLITUS
     Dosage: AVANDIA WAS NOT LISTED AMONG THE PATIENT^S DISCHARGE RECORDS.
     Route: 048

REACTIONS (7)
  - Myocardial ischaemia [None]
  - Silent myocardial infarction [None]
  - Coronary artery disease [None]
  - Catheterisation cardiac [Not Recovered/Not Resolved]
  - Atrioventricular block [None]
  - Implantable defibrillator insertion [None]
  - Cardiac failure congestive [None]
